FAERS Safety Report 21964058 (Version 1)
Quarter: 2023Q1

REPORT INFORMATION
  Report Type: Spontaneous
  Country: US (occurrence: None)
  Receive Date: 20230206
  Receipt Date: 20230206
  Transmission Date: 20230417
  Serious: Yes (Death)
  Sender: FDA-Public Use
  Company Number: None

PATIENT
  Age: 78 Year
  Sex: Female

DRUGS (1)
  1. OPSUMIT [Suspect]
     Active Substance: MACITENTAN
     Indication: Pulmonary hypertension
     Dosage: FREQUENCY : DAILY;?
     Route: 048
     Dates: start: 20200117, end: 20230129

REACTIONS (6)
  - Fall [None]
  - Femur fracture [None]
  - Clavicle fracture [None]
  - Atrial fibrillation [None]
  - Acute respiratory failure [None]
  - Post procedural complication [None]

NARRATIVE: CASE EVENT DATE: 20230130
